FAERS Safety Report 23480285 (Version 1)
Quarter: 2024Q1

REPORT INFORMATION
  Report Type: Spontaneous
  Country: US (occurrence: US)
  Receive Date: 20240205
  Receipt Date: 20240205
  Transmission Date: 20240410
  Serious: Yes (Other)
  Sender: FDA-Public Use
  Company Number: US-TEVA-VS-3151434

PATIENT
  Age: 19 Year
  Sex: Male
  Weight: 77.1 kg

DRUGS (3)
  1. ARMODAFINIL [Suspect]
     Active Substance: ARMODAFINIL
     Indication: Insomnia
     Dosage: MORNING
     Route: 065
  2. LUMRYZ [Suspect]
     Active Substance: SODIUM OXYBATE
     Indication: Narcolepsy
     Route: 048
     Dates: start: 20231211, end: 202312
  3. LUMRYZ [Suspect]
     Active Substance: SODIUM OXYBATE
     Indication: Narcolepsy
     Route: 048
     Dates: start: 202312

REACTIONS (10)
  - Anaphylactoid reaction [Unknown]
  - Enuresis [Unknown]
  - Drug effect less than expected [Unknown]
  - Insomnia [Unknown]
  - Terminal insomnia [Unknown]
  - Gait disturbance [Unknown]
  - Fatigue [Unknown]
  - Feeling abnormal [Unknown]
  - Nocturia [Unknown]
  - Somnolence [Unknown]

NARRATIVE: CASE EVENT DATE: 20231101
